FAERS Safety Report 7034925-8 (Version None)
Quarter: 2010Q4

REPORT INFORMATION
  Report Type: 
  Country: None (occurrence: None)
  Receive Date: 20101008
  Receipt Date: 20100929
  Transmission Date: 20110411
  Serious: Yes (Hospitalization)
  Sender: FDA-Public Use
  Company Number: US-JNJFOC-20101000512

PATIENT
  Sex: Male
  Weight: 29.6 kg

DRUGS (4)
  1. REMICADE [Suspect]
     Indication: INFLAMMATORY BOWEL DISEASE
     Dosage: MOST RECENT INFUSION
     Route: 042
  2. REMICADE [Suspect]
     Route: 042
  3. 5-ASA [Concomitant]
  4. METHOTREXATE [Concomitant]

REACTIONS (1)
  - COLITIS ULCERATIVE [None]
